FAERS Safety Report 19123070 (Version 3)
Quarter: 2021Q3

REPORT INFORMATION
  Report Type: Spontaneous
  Country: US (occurrence: US)
  Receive Date: 20210412
  Receipt Date: 20210831
  Transmission Date: 20211014
  Serious: Yes (Other)
  Sender: FDA-Public Use
  Company Number: US-PFIZER INC-2021068942

PATIENT
  Age: 50 Year
  Sex: Female

DRUGS (4)
  1. PREDNISONE. [Concomitant]
     Active Substance: PREDNISONE
     Dosage: UNK
  2. COVID?19 VACCINE [Concomitant]
     Indication: IMMUNISATION
     Dosage: UNK
  3. XELJANZ XR [Suspect]
     Active Substance: TOFACITINIB CITRATE
     Indication: RHEUMATOID ARTHRITIS
     Dosage: 11 MG, 1X/DAY
     Route: 048
     Dates: start: 20210115
  4. COVID?19 VACCINE [Concomitant]
     Dosage: UNK
     Dates: start: 20210406

REACTIONS (7)
  - Uterine mass [Unknown]
  - Intentional dose omission [Unknown]
  - Sensitivity to weather change [Unknown]
  - Condition aggravated [Recovering/Resolving]
  - Musculoskeletal discomfort [Unknown]
  - Product dose omission issue [Unknown]
  - Fatigue [Recovering/Resolving]

NARRATIVE: CASE EVENT DATE: 202101
